FAERS Safety Report 5254425-5 (Version None)
Quarter: 2007Q1

REPORT INFORMATION
  Report Type: 
  Country: None (occurrence: None)
  Receive Date: 20070302
  Receipt Date: 20070221
  Transmission Date: 20070707
  Serious: Yes (Hospitalization)
  Sender: FDA-Public Use
  Company Number: US-SHR-US-2005-024568

PATIENT
  Age: 74 Year
  Sex: Female

DRUGS (10)
  1. BETASERON [Suspect]
     Indication: MULTIPLE SCLEROSIS
     Dosage: 8 MIU, EVERY 2D
     Route: 058
     Dates: start: 20031119
  2. SODIUM BENZOATE [Concomitant]
  3. EFFEXOR [Concomitant]
     Dosage: 150 MG, UNK
  4. OXYCONTIN [Concomitant]
     Dosage: 40 MG, 2X/DAY
  5. PROTONIX [Concomitant]
  6. TRAZODONE HCL [Concomitant]
  7. LIPITOR [Concomitant]
  8. METOCLOPRAMIDE [Concomitant]
  9. GABAPENTIN [Concomitant]
     Dosage: 300 MG, UNK
  10. HYPNOTICS AND SEDATIVES [Concomitant]
     Indication: SLEEP DISORDER

REACTIONS (4)
  - CONCUSSION [None]
  - FALL [None]
  - MOBILITY DECREASED [None]
  - URINARY INCONTINENCE [None]
